FAERS Safety Report 4851828-5 (Version None)
Quarter: 2005Q4

REPORT INFORMATION
  Report Type: 
  Country: None (occurrence: None)
  Receive Date: 20051209
  Receipt Date: 20051129
  Transmission Date: 20060501
  Serious: Yes (Other)
  Sender: FDA-Public Use
  Company Number: 2005163006

PATIENT
  Age: 57 Year
  Sex: Female
  Weight: 81.6475 kg

DRUGS (5)
  1. LIPITOR [Suspect]
     Indication: BLOOD CHOLESTEROL INCREASED
     Dosage: 10 MG (10 MG, 1 IN 1 D)
     Dates: end: 20051101
  2. LOTREL [Concomitant]
  3. EVISTA [Concomitant]
  4. CALCIUM (CALCIUM) [Concomitant]
  5. VITAMINES B (CYANOCOBALAMIN, PYRIDOXINE, THIAMINE) [Concomitant]

REACTIONS (2)
  - CORNEAL DEFECT [None]
  - MUSCLE SPASMS [None]
